FAERS Safety Report 5092465-X (Version None)
Quarter: 2006Q3

REPORT INFORMATION
  Report Type: 
  Country: None (occurrence: None)
  Receive Date: 20060830
  Receipt Date: 20060818
  Transmission Date: 20061208
  Serious: Yes (Hospitalization)
  Sender: FDA-Public Use
  Company Number: PHEH2006US10628

PATIENT
  Sex: Male

DRUGS (7)
  1. BENAZEPRIL HYDROCHLORIDE [Suspect]
     Dates: start: 19981201
  2. DIGOXIN [Concomitant]
  3. SPIRONOLACTONE [Concomitant]
  4. THYROXINE [Concomitant]
  5. FUROSEMIDE [Concomitant]
  6. ASPIRIN [Concomitant]
  7. COREG [Suspect]
     Indication: BUNDLE BRANCH BLOCK

REACTIONS (6)
  - BLOOD PRESSURE DECREASED [None]
  - BREAST PAIN [None]
  - DRUG INTERACTION [None]
  - DYSPNOEA [None]
  - IMPLANTABLE DEFIBRILLATOR REPLACEMENT [None]
  - WHEEZING [None]
